FAERS Safety Report 4273506-6 (Version None)
Quarter: 2004Q1

REPORT INFORMATION
  Report Type: 
  Country: None (occurrence: None)
  Receive Date: 20040119
  Receipt Date: 20040108
  Transmission Date: 20041129
  Serious: Yes (Other)
  Sender: FDA-Public Use
  Company Number: JP-GLAXOSMITHKLINE-B0319554A

PATIENT
  Age: 43 Year
  Sex: Male
  Weight: 60 kg

DRUGS (13)
  1. VALACYCLOVIR HCL [Suspect]
     Indication: HERPES ZOSTER
     Dosage: 2000MG PER DAY
     Route: 048
     Dates: start: 20040105, end: 20040106
  2. FUROSEMIDE [Concomitant]
  3. ALLOPURINOL [Concomitant]
     Route: 048
  4. PROPRANOLOL HYDROCHLORIDE [Concomitant]
  5. SODIUM PICOSULPHATE [Concomitant]
     Route: 048
  6. AMLODIPINE BESYLATE [Concomitant]
     Route: 048
  7. PRECIPITATED CALCIUM CARBONATE [Concomitant]
     Route: 048
  8. SEVELAMER HYDROCHLORIDE [Concomitant]
     Route: 048
  9. DEXTROMETHORPHAN HYDROBROMIDE [Concomitant]
     Route: 048
  10. CARBOCISTEINE [Concomitant]
     Route: 048
  11. TRANEXAMIC ACID [Concomitant]
  12. AZITHROMYCIN HYDRATE [Concomitant]
     Route: 048
  13. MECOBALAMIN [Concomitant]
     Route: 048

REACTIONS (5)
  - CONFUSIONAL STATE [None]
  - DELIRIUM [None]
  - DELUSION [None]
  - EPILEPSY [None]
  - HALLUCINATION [None]
